FAERS Safety Report 4509746-8 (Version None)
Quarter: 2004Q4

REPORT INFORMATION
  Report Type: 
  Country: None (occurrence: None)
  Receive Date: 20041119
  Receipt Date: 20041102
  Transmission Date: 20050328
  Serious: Yes (Other)
  Sender: FDA-Public Use
  Company Number: US_0411107809

PATIENT
  Sex: Female

DRUGS (4)
  1. EVISTA [Suspect]
  2. FOSAMAX [Concomitant]
  3. ACTONEL [Concomitant]
  4. HORMONE REPLACEMENT THERAPY [Concomitant]

REACTIONS (1)
  - BREAST CANCER [None]
